FAERS Safety Report 6079621-9 (Version None)
Quarter: 2009Q1

REPORT INFORMATION
  Report Type: 
  Country: None (occurrence: None)
  Receive Date: 20090217
  Receipt Date: 20090209
  Transmission Date: 20090719
  Serious: Yes (Hospitalization)
  Sender: FDA-Public Use
  Company Number: US-JNJFOC-20090202674

PATIENT
  Sex: Male
  Weight: 74.84 kg

DRUGS (7)
  1. DURAGESIC-100 [Suspect]
     Route: 062
  2. DURAGESIC-100 [Suspect]
     Indication: DRUG USE FOR UNKNOWN INDICATION
     Route: 062
  3. OXYCONTIN [Concomitant]
     Route: 048
  4. OXYCONTIN [Concomitant]
     Indication: SPINAL DISORDER
     Route: 048
  5. MORPHINE [Concomitant]
     Indication: SPINAL DISORDER
     Dosage: 30 MG TABLET/15 MG 2 EVERY 4 HOURS
     Route: 048
  6. PLAVIX [Concomitant]
     Indication: CARDIAC DISORDER
     Dosage: PRE-EXISTING HEART
     Route: 048
  7. ASPIRIN [Concomitant]
     Indication: CARDIAC DISORDER
     Dosage: DAILY ORAL, FOR PRE-EXISITING HEART
     Route: 048

REACTIONS (8)
  - DEHYDRATION [None]
  - DYSPNOEA [None]
  - HEART RATE DECREASED [None]
  - HYPERHIDROSIS [None]
  - INCORRECT DRUG ADMINISTRATION DURATION [None]
  - LOWER RESPIRATORY TRACT INFECTION [None]
  - MYOCARDIAL INFARCTION [None]
  - WITHDRAWAL SYNDROME [None]
